FAERS Safety Report 13097950 (Version 1)
Quarter: 2017Q1

REPORT INFORMATION
  Report Type: Spontaneous
  Country: US (occurrence: US)
  Receive Date: 20170109
  Receipt Date: 20170109
  Transmission Date: 20170428
  Serious: No
  Sender: FDA-Public Use
  Company Number: US-GE HEALTHCARE MEDICAL DIAGNOSTICS-DATS-PR-1611S-0066

PATIENT
  Age: 54 Year
  Sex: Female

DRUGS (6)
  1. SINEMET [Concomitant]
     Active Substance: CARBIDOPA\LEVODOPA
  2. OLOPATADINE [Concomitant]
     Active Substance: OLOPATADINE
  3. DATSCAN [Suspect]
     Active Substance: IODINE\IOFLUPANE I-123
     Indication: DIAGNOSTIC PROCEDURE
  4. SYSTANE BALANCE REST [Concomitant]
  5. HYPROMELLOSE [Concomitant]
     Active Substance: HYPROMELLOSES
  6. DATSCAN [Suspect]
     Active Substance: IODINE\IOFLUPANE I-123
     Indication: VISUAL IMPAIRMENT
     Dosage: DOSE NOT REPORTED
     Route: 065
     Dates: start: 20161026, end: 20161026

REACTIONS (2)
  - Radioisotope scan abnormal [Not Recovered/Not Resolved]
  - No adverse event [Recovered/Resolved]

NARRATIVE: CASE EVENT DATE: 20161026
